FAERS Safety Report 10402135 (Version 1)
Quarter: 2014Q1

REPORT INFORMATION
  Report Type: Spontaneous
  Country: US (occurrence: None)
  Receive Date: 20130815
  Receipt Date: 20130815
  Transmission Date: 20141002
  Serious: No
  Sender: FDA-Public Use
  Company Number: ADR-2009-6509

PATIENT
  Age: 67 Year
  Sex: Female

DRUGS (3)
  1. LIORESAL INTRATHECAL (BACLOFEN INJECTION) 2000 MCG/DAY [Suspect]
     Indication: CANCER PAIN
     Dosage: SIMPLE CONTINUOUS
     Route: 037
  2. LIORESAL INTRATHECAL (BACLOFEN INJECTION) 2000 MCG/DAY [Suspect]
     Indication: NEOPLASM MALIGNANT
     Dosage: SIMPLE CONTINUOUS
     Route: 037
  3. FENTANYL [Concomitant]

REACTIONS (1)
  - Pain [None]
